FAERS Safety Report 9517112 (Version 2)
Quarter: 2014Q2

REPORT INFORMATION
  Report Type: Report from Study
  Country: DE (occurrence: DE)
  Receive Date: 20130911
  Receipt Date: 20140409
  Transmission Date: 20141212
  Serious: Yes (Hospitalization)
  Sender: FDA-Public Use
  Company Number: DE-BAXTER-2013BAX034797

PATIENT
  Age: 50 Year
  Sex: 0
  Weight: 81 kg

DRUGS (2)
  1. ADVATE  250 I.E. [Suspect]
     Indication: FACTOR VIII DEFICIENCY
     Route: 042
     Dates: start: 20110912, end: 20130901
  2. ADVATE  250 I.E. [Suspect]
     Indication: PROPHYLAXIS

REACTIONS (1)
  - Hemiparesis [Not Recovered/Not Resolved]
